FAERS Safety Report 24779481 (Version 1)
Quarter: 2024Q4

REPORT INFORMATION
  Report Type: Spontaneous
  Country: US (occurrence: None)
  Receive Date: 20241226
  Receipt Date: 20241226
  Transmission Date: 20250115
  Serious: Yes (Hospitalization)
  Sender: Public
  Company Number: None

PATIENT
  Age: 65 Year
  Sex: Female

DRUGS (3)
  1. TEMOZOLOMIDE [Suspect]
     Active Substance: TEMOZOLOMIDE
     Indication: Malignant central nervous system neoplasm
     Dosage: FREQUENCY : DAILY;?
     Route: 048
     Dates: start: 202410
  2. DEXAMETHASONE [Concomitant]
     Active Substance: DEXAMETHASONE
  3. KEPPRA [Concomitant]
     Active Substance: LEVETIRACETAM

REACTIONS (4)
  - Headache [None]
  - Vasogenic cerebral oedema [None]
  - Mental status changes [None]
  - Cerebral mass effect [None]

NARRATIVE: CASE EVENT DATE: 20241210
